FAERS Safety Report 8236549-3 (Version None)
Quarter: 2012Q1

REPORT INFORMATION
  Report Type: 
  Country: None (occurrence: None)
  Receive Date: 20120327
  Receipt Date: 20120320
  Transmission Date: 20120608
  Serious: Yes (Other)
  Sender: FDA-Public Use
  Company Number: US-UCBSA-052863

PATIENT
  Age: 29 Year
  Sex: Male
  Weight: 67.13 kg

DRUGS (6)
  1. IBUPROFEN (ADVIL) [Concomitant]
     Indication: HEADACHE
     Route: 048
  2. LEVETIRACETAM [Suspect]
     Indication: CONVULSION
     Dosage: 1500 MG IN AM,2250 IN PM
     Route: 048
     Dates: start: 20120301
  3. LAMICTAL [Concomitant]
     Indication: CONVULSION
     Route: 048
     Dates: start: 19990101
  4. VIMPAT [Suspect]
     Route: 048
     Dates: start: 20090101
  5. DIAMOX [Concomitant]
     Route: 048
     Dates: start: 19990101
  6. KEPPRA XR [Suspect]
     Indication: CONVULSION
     Dosage: DOSE-1500 MG IN AND 2250 MG IN PM
     Route: 048
     Dates: start: 20090101, end: 20120201

REACTIONS (2)
  - CONVULSION [None]
  - MEDICATION ERROR [None]
